FAERS Safety Report 20916468 (Version 1)
Quarter: 2022Q2

REPORT INFORMATION
  Report Type: Spontaneous
  Country: CA (occurrence: CA)
  Receive Date: 20220604
  Receipt Date: 20220604
  Transmission Date: 20220720
  Serious: Yes (Other)
  Sender: FDA-Public Use
  Company Number: CA-TEVA-2022-CA-2041856

PATIENT
  Sex: Female

DRUGS (1)
  1. PREDNISONE [Suspect]
     Active Substance: PREDNISONE
     Route: 065

REACTIONS (6)
  - Drug dependence [Unknown]
  - Mood altered [Unknown]
  - Alopecia [Unknown]
  - Onychoclasis [Unknown]
  - Constipation [Unknown]
  - Insomnia [Unknown]
